FAERS Safety Report 17719761 (Version 1)
Quarter: 2020Q2

REPORT INFORMATION
  Report Type: Report from Study
  Country: CN (occurrence: CN)
  Receive Date: 20200428
  Receipt Date: 20200428
  Transmission Date: 20200714
  Serious: Yes (Life-Threatening)
  Sender: FDA-Public Use
  Company Number: CN-ASTRAZENECA-2020SE56714

PATIENT
  Age: 51 Year
  Sex: Male

DRUGS (8)
  1. ATROPINE. [Concomitant]
     Active Substance: ATROPINE
  2. TELMISARTAN. [Concomitant]
     Active Substance: TELMISARTAN
  3. ADRENALINE [Concomitant]
     Active Substance: EPINEPHRINE
  4. CARVEDILOL. [Concomitant]
     Active Substance: CARVEDILOL
  5. PRASUGREL. [Concomitant]
     Active Substance: PRASUGREL
  6. TICAGRELOR. [Suspect]
     Active Substance: TICAGRELOR
     Indication: ACUTE MYOCARDIAL INFARCTION
     Route: 048
  7. ASPIRIN. [Concomitant]
     Active Substance: ASPIRIN
  8. AATORVASTATIN CALCIUM [Concomitant]

REACTIONS (2)
  - Sinus bradycardia [Recovered/Resolved]
  - Sinus arrest [Recovered/Resolved]
